FAERS Safety Report 11055401 (Version 1)
Quarter: 2015Q2

REPORT INFORMATION
  Report Type: Spontaneous
  Country: US (occurrence: None)
  Receive Date: 20150421
  Receipt Date: 20150421
  Transmission Date: 20150821
  Serious: Yes (Other)
  Sender: FDA-Public Use
  Company Number: None

PATIENT
  Age: 59 Year
  Sex: Female
  Weight: 49.9 kg

DRUGS (1)
  1. ABRAXANE [Suspect]
     Active Substance: PACLITAXEL
     Indication: NEOPLASM MALIGNANT
     Dosage: 120 ML 3 FRIDAYS ON + 1 FRIDAY OFF
     Route: 042
     Dates: start: 20150213

REACTIONS (3)
  - Haematochezia [None]
  - Epistaxis [None]
  - Vision blurred [None]

NARRATIVE: CASE EVENT DATE: 20150221
